FAERS Safety Report 16454420 (Version 1)
Quarter: 2019Q2

REPORT INFORMATION
  Report Type: Spontaneous
  Country: US (occurrence: US)
  Receive Date: 20190619
  Receipt Date: 20190619
  Transmission Date: 20190711
  Serious: No
  Sender: FDA-Public Use
  Company Number: US-ROCHE-2224092

PATIENT
  Sex: Male
  Weight: 78.09 kg

DRUGS (6)
  1. PNEUMOVAX 23 [Concomitant]
     Active Substance: PNEUMOCOCCAL VACCINE, POLYVALENT 23
     Dosage: ONGOING: UNKNOWN
     Route: 065
     Dates: start: 20180723
  2. FOLIC ACID. [Concomitant]
     Active Substance: FOLIC ACID
     Dosage: ONGOING: UNKNOWN
     Route: 048
     Dates: start: 20180727
  3. HYDROCHLOROTHIAZID [Concomitant]
     Active Substance: HYDROCHLOROTHIAZIDE
     Dosage: ONGOING: UNKNOWN
     Route: 048
     Dates: start: 20180723
  4. ACTEMRA [Suspect]
     Active Substance: TOCILIZUMAB
     Indication: RHEUMATOID ARTHRITIS
     Route: 058
     Dates: start: 20180727
  5. AMLODIPINE [Concomitant]
     Active Substance: AMLODIPINE BESYLATE
     Dosage: ONGOING: UNKNOWN
     Route: 048
     Dates: start: 20180727
  6. ATORVASTATIN [Concomitant]
     Active Substance: ATORVASTATIN
     Dosage: ONGOING: UNKNOWN
     Route: 048
     Dates: start: 20180723

REACTIONS (2)
  - Rash pruritic [Recovering/Resolving]
  - Flushing [Unknown]
